FAERS Safety Report 6830769-8 (Version None)
Quarter: 2010Q3

REPORT INFORMATION
  Report Type: 
  Country: None (occurrence: None)
  Receive Date: 20100712
  Receipt Date: 20100629
  Transmission Date: 20110219
  Serious: Yes (Other)
  Sender: FDA-Public Use
  Company Number: PHHY2009CA30886

PATIENT
  Sex: Female

DRUGS (3)
  1. ACLASTA [Suspect]
     Indication: OSTEOPOROSIS
     Dosage: 5 MG
     Route: 042
     Dates: start: 20080501
  2. ACLASTA [Suspect]
     Indication: SCLERODERMA
     Dosage: 5 MG
     Route: 042
     Dates: start: 20090706
  3. ACLASTA [Suspect]
     Dosage: 5 MG
     Route: 042
     Dates: start: 20100628

REACTIONS (10)
  - ARTHRALGIA [None]
  - BONE PAIN [None]
  - FALL [None]
  - HEAD INJURY [None]
  - HYPOAESTHESIA ORAL [None]
  - INFLUENZA LIKE ILLNESS [None]
  - JOINT SWELLING [None]
  - MUSCLE SPASMS [None]
  - PAIN IN EXTREMITY [None]
  - SCLERODERMA [None]
